FAERS Safety Report 14569756 (Version 3)
Quarter: 2018Q2

REPORT INFORMATION
  Report Type: Report from Study
  Country: US (occurrence: US)
  Receive Date: 20180224
  Receipt Date: 20180417
  Transmission Date: 20180711
  Serious: Yes (Hospitalization)
  Sender: FDA-Public Use
  Company Number: US-MALLINCKRODT-T201800291

PATIENT
  Sex: Female

DRUGS (2)
  1. REPOSITORY CORTICOTROPIN INJECTION [Suspect]
     Active Substance: CORTICOTROPIN
     Indication: PROTEINURIA
     Dosage: 80 UNITS / 1 ML, EVERY 3 DAYS/EVERY 72 HOURS (MONDAY/WEDNESDAY/FRIDAY)
     Route: 058
     Dates: start: 20170308
  2. REPOSITORY CORTICOTROPIN INJECTION [Suspect]
     Active Substance: CORTICOTROPIN
     Indication: NEPHROTIC SYNDROME
     Dosage: 80 UNITS / 1 ML, EVERY 3 DAYS/EVERY 72 HOURS (MONDAY/WEDNESDAY/FRIDAY)
     Route: 058

REACTIONS (9)
  - Dehydration [Recovering/Resolving]
  - Abdominal pain upper [Recovering/Resolving]
  - Eating disorder [Recovering/Resolving]
  - Diarrhoea [Recovering/Resolving]
  - Nausea [Recovering/Resolving]
  - Hypertension [Recovering/Resolving]
  - Blood glucose increased [Recovering/Resolving]
  - Intestinal polyp [Unknown]
  - Drug dose omission [Unknown]
